FAERS Safety Report 20511800 (Version 9)
Quarter: 2022Q3

REPORT INFORMATION
  Report Type: Spontaneous
  Country: US (occurrence: US)
  Receive Date: 20220224
  Receipt Date: 20220708
  Transmission Date: 20221026
  Serious: Yes (Other)
  Sender: FDA-Public Use
  Company Number: US-PFIZER INC-202200255591

PATIENT
  Age: 79 Year
  Sex: Female

DRUGS (2)
  1. PREMARIN [Suspect]
     Active Substance: ESTROGENS, CONJUGATED
     Indication: Vulvovaginal dryness
     Dosage: 0.5 MG, THREE TIMES A WEEK
  2. PREMARIN [Suspect]
     Active Substance: ESTROGENS, CONJUGATED
     Indication: Vaginal prolapse

REACTIONS (9)
  - Urinary tract infection [Not Recovered/Not Resolved]
  - Proteus infection [Unknown]
  - Cystitis [Unknown]
  - Device use issue [Unknown]
  - Prolapse [Unknown]
  - Fatigue [Unknown]
  - Intentional product misuse [Unknown]
  - Off label use [Unknown]
  - Product use issue [Unknown]

NARRATIVE: CASE EVENT DATE: 20171201
